FAERS Safety Report 6370118-5 (Version None)
Quarter: 2009Q3

REPORT INFORMATION
  Report Type: 
  Country: None (occurrence: None)
  Receive Date: 20090923
  Receipt Date: 20080515
  Transmission Date: 20100115
  Serious: Yes (Other)
  Sender: FDA-Public Use
  Company Number: US-ASTRAZENECA-2006UW21428

PATIENT
  Age: 31 Year
  Sex: Female
  Weight: 80.7 kg

DRUGS (8)
  1. SEROQUEL [Suspect]
     Indication: ANXIETY
     Route: 048
     Dates: start: 20060207, end: 20060622
  2. SEROQUEL [Suspect]
     Indication: DEPRESSION
     Route: 048
     Dates: start: 20060207, end: 20060622
  3. SEROQUEL [Suspect]
     Route: 048
  4. SEROQUEL [Suspect]
     Route: 048
  5. PAXIL CR [Concomitant]
     Dates: start: 20040831
  6. XANAX [Concomitant]
     Dates: start: 20040831
  7. ALDACTONE [Concomitant]
     Dates: start: 20040831
  8. COZAAR [Concomitant]
     Dates: start: 20040831

REACTIONS (2)
  - DIABETES MELLITUS [None]
  - TYPE 2 DIABETES MELLITUS [None]
